FAERS Safety Report 5542398-7 (Version None)
Quarter: 2007Q4

REPORT INFORMATION
  Report Type: 
  Country: None (occurrence: None)
  Receive Date: 20071210
  Receipt Date: 20071129
  Transmission Date: 20080405
  Serious: Yes (Other)
  Sender: FDA-Public Use
  Company Number: US-WYE-H01518607

PATIENT
  Age: 44 Year
  Sex: Female

DRUGS (3)
  1. EFFEXOR XR [Suspect]
     Route: 048
     Dates: start: 20020101, end: 20050101
  2. EFFEXOR XR [Suspect]
     Dosage: ^TRIED TO TITRATE OFF^
     Route: 048
     Dates: start: 20050101
  3. EFFEXOR XR [Suspect]
     Route: 048

REACTIONS (7)
  - ARTHRALGIA [None]
  - CONTUSION [None]
  - DRUG WITHDRAWAL SYNDROME [None]
  - HEADACHE [None]
  - NAUSEA [None]
  - PARAESTHESIA [None]
  - SUICIDE ATTEMPT [None]
